FAERS Safety Report 18881163 (Version 1)
Quarter: 2021Q1

REPORT INFORMATION
  Report Type: Spontaneous
  Country: CA (occurrence: CA)
  Receive Date: 20210211
  Receipt Date: 20210211
  Transmission Date: 20210420
  Serious: Yes (Death)
  Sender: FDA-Public Use
  Company Number: CA-MALLINCKRODT-T202100556

PATIENT
  Age: 44 Year
  Sex: Male

DRUGS (1)
  1. INOMAX [Suspect]
     Active Substance: NITRIC OXIDE
     Indication: COVID-19
     Dosage: 10 PPM FOR ONE WEEK APPROXIMATELY (INHALATIONAL)
     Route: 055
     Dates: end: 20210204

REACTIONS (3)
  - Product use issue [Unknown]
  - COVID-19 [Fatal]
  - Product use in unapproved indication [Unknown]
